FAERS Safety Report 10017486 (Version 3)
Quarter: 2014Q2

REPORT INFORMATION
  Report Type: Spontaneous
  Country: DE (occurrence: DE)
  Receive Date: 20140318
  Receipt Date: 20140616
  Transmission Date: 20141212
  Serious: Yes (Other)
  Sender: FDA-Public Use
  Company Number: DE-AMGEN-DEUSP2014009709

PATIENT
  Age: 53 Year
  Sex: Female

DRUGS (3)
  1. ENBREL [Suspect]
     Indication: PSORIATIC ARTHROPATHY
     Dosage: 50 MG, WEEKLY
     Route: 065
     Dates: start: 20130604, end: 201401
  2. ENBREL [Suspect]
     Dosage: 50 MG, WEEKLY
     Route: 065
     Dates: start: 2014, end: 20140403
  3. IBUPROFEN [Concomitant]
     Dosage: UNK

REACTIONS (4)
  - Pericardial effusion [Not Recovered/Not Resolved]
  - C-reactive protein increased [Unknown]
  - Withdrawal syndrome [Unknown]
  - Melanocytic naevus [Unknown]
